FAERS Safety Report 4842824-2 (Version None)
Quarter: 2005Q4

REPORT INFORMATION
  Report Type: 
  Country: None (occurrence: None)
  Receive Date: 20051201
  Receipt Date: 20051031
  Transmission Date: 20060501
  Serious: Yes (Other)
  Sender: FDA-Public Use
  Company Number: US-AMGEN-US156157

PATIENT
  Sex: Male

DRUGS (8)
  1. ENBREL [Suspect]
     Indication: PSORIASIS
     Dates: start: 20050101, end: 20050701
  2. LEVOXYL [Concomitant]
  3. CARDURA [Concomitant]
  4. LIPITOR [Concomitant]
  5. ZANTAC [Concomitant]
  6. REGLAN [Concomitant]
  7. TYLENOL [Concomitant]
  8. CLOBETASOL [Concomitant]
     Route: 061

REACTIONS (2)
  - NEUROPATHY PERIPHERAL [None]
  - PROSTATE CANCER [None]
